FAERS Safety Report 5716039-X (Version None)
Quarter: 2008Q2

REPORT INFORMATION
  Report Type: 
  Country: None (occurrence: None)
  Receive Date: 20080424
  Receipt Date: 20080424
  Transmission Date: 20081010
  Serious: Yes (Other)
  Sender: FDA-Public Use
  Company Number: A0724440A

PATIENT
  Sex: Female
  Weight: 70 kg

DRUGS (2)
  1. ALLI [Suspect]
     Indication: WEIGHT LOSS DIET
     Route: 048
  2. THYROID TAB [Concomitant]

REACTIONS (4)
  - ADVERSE EVENT [None]
  - DEPRESSION [None]
  - DIARRHOEA [None]
  - SUICIDAL IDEATION [None]
